FAERS Safety Report 6293024-3 (Version None)
Quarter: 2009Q3

REPORT INFORMATION
  Report Type: 
  Country: None (occurrence: None)
  Receive Date: 20090731
  Receipt Date: 20090728
  Transmission Date: 20100115
  Serious: Yes (Life-Threatening, Hospitalization)
  Sender: FDA-Public Use
  Company Number: FR-BRISTOL-MYERS SQUIBB COMPANY-14629299

PATIENT
  Age: 34 Year
  Sex: Male
  Weight: 100 kg

DRUGS (3)
  1. ABILIFY [Suspect]
     Indication: SCHIZOPHRENIA
     Route: 048
     Dates: start: 20080901, end: 20090504
  2. XANAX [Concomitant]
     Indication: ANXIETY
     Route: 048
     Dates: start: 20080601
  3. IMOVANE [Concomitant]
     Indication: INSOMNIA
     Dates: start: 20080701

REACTIONS (2)
  - DIABETIC KETOACIDOSIS [None]
  - RENAL FAILURE [None]
